FAERS Safety Report 6952759-7 (Version None)
Quarter: 2010Q3

REPORT INFORMATION
  Report Type: 
  Country: None (occurrence: None)
  Receive Date: 20100829
  Receipt Date: 20100513
  Transmission Date: 20110219
  Serious: No
  Sender: FDA-Public Use
  Company Number: US-ABBOTT-10P-163-0645484-00

PATIENT
  Sex: Female

DRUGS (3)
  1. NIASPAN [Suspect]
     Indication: BLOOD TRIGLYCERIDES INCREASED
     Dates: start: 20000101
  2. NIASPAN [Suspect]
     Indication: CEREBROVASCULAR ACCIDENT
  3. CADUET [Concomitant]
     Indication: PRODUCT USED FOR UNKNOWN INDICATION

REACTIONS (2)
  - BLOOD GLUCOSE INCREASED [None]
  - TYPE 2 DIABETES MELLITUS [None]
